FAERS Safety Report 8059841 (Version 7)
Quarter: 2015Q2

REPORT INFORMATION
  Report Type: Spontaneous
  Country: US (occurrence: US)
  Receive Date: 20110728
  Receipt Date: 20150401
  Transmission Date: 20150821
  Serious: Yes (Hospitalization, Other)
  Sender: FDA-Public Use
  Company Number: US-ASTRAZENECA-2011SE43147

PATIENT
  Age: 28463 Day
  Sex: Female
  Weight: 74.8 kg

DRUGS (38)
  1. SYMBICORT [Suspect]
     Active Substance: BUDESONIDE\FORMOTEROL FUMARATE DIHYDRATE
     Indication: CHRONIC OBSTRUCTIVE PULMONARY DISEASE
     Dosage: ONE DOSE AT NIGHT
     Route: 055
  2. VITAMINS [Concomitant]
     Active Substance: VITAMINS
  3. LIALDA [Concomitant]
     Active Substance: MESALAMINE
     Indication: COLITIS
     Dates: start: 2014
  4. AUGMENTIN [Concomitant]
     Active Substance: AMOXICILLIN\CLAVULANATE POTASSIUM
     Dosage: 500, EVERY 8 HOURS
     Route: 048
  5. SYMBICORT [Suspect]
     Active Substance: BUDESONIDE\FORMOTEROL FUMARATE DIHYDRATE
     Indication: CHRONIC OBSTRUCTIVE PULMONARY DISEASE
     Dosage: 160/4.5 MCG, 2 PUFFS BID
     Route: 055
     Dates: start: 2012
  6. SYMBICORT [Suspect]
     Active Substance: BUDESONIDE\FORMOTEROL FUMARATE DIHYDRATE
     Indication: CHRONIC OBSTRUCTIVE PULMONARY DISEASE
     Dosage: 160/4.5 MCG, UNKNOWN
     Route: 055
  7. SYMBICORT [Suspect]
     Active Substance: BUDESONIDE\FORMOTEROL FUMARATE DIHYDRATE
     Indication: ASTHMA
     Dosage: 160/4.5 MCG, UNKNOWN
     Route: 055
  8. NEXIUM [Suspect]
     Active Substance: ESOMEPRAZOLE MAGNESIUM
     Indication: GASTROOESOPHAGEAL REFLUX DISEASE
     Route: 048
     Dates: start: 2010
  9. SYMBICORT [Suspect]
     Active Substance: BUDESONIDE\FORMOTEROL FUMARATE DIHYDRATE
     Indication: ASTHMA
     Dosage: 160/4.5 MCG, 1 PUFFS IN EVERY 12 H
     Route: 055
  10. SYMBICORT [Suspect]
     Active Substance: BUDESONIDE\FORMOTEROL FUMARATE DIHYDRATE
     Indication: CHRONIC OBSTRUCTIVE PULMONARY DISEASE
     Dosage: 160/4.5 MCG, 1 PUFFS IN EVERY 12 H
     Route: 055
  11. NEXIUM [Suspect]
     Active Substance: ESOMEPRAZOLE MAGNESIUM
     Indication: HIATUS HERNIA
     Route: 048
     Dates: start: 2010
  12. VALSARTAN. [Concomitant]
     Active Substance: VALSARTAN
     Indication: BLOOD PRESSURE ABNORMAL
     Dosage: DIOVAN 160 MG DAILY
     Route: 048
  13. CITALOPRAM HYDROBROMIDE. [Concomitant]
     Active Substance: CITALOPRAM HYDROBROMIDE
     Route: 048
  14. VITAMIN A [Concomitant]
     Active Substance: VITAMIN A
     Dosage: 8000 DAILY
  15. BYSTOLIC [Concomitant]
     Active Substance: NEBIVOLOL HYDROCHLORIDE
     Route: 048
  16. NICOTINE. [Concomitant]
     Active Substance: NICOTINE
     Dosage: 1 EACH PATCH TD 24
     Route: 062
  17. FLAXSEED [Concomitant]
     Active Substance: FLAX SEED
     Indication: BLOOD CHOLESTEROL ABNORMAL
     Dosage: 100MG/450MG DAILY
     Dates: start: 2009
  18. OMEGA 3 [Concomitant]
     Active Substance: OMEGA-3 FATTY ACIDS
     Indication: BLOOD CHOLESTEROL ABNORMAL
     Dates: start: 2009
  19. VITAMIN D [Concomitant]
     Active Substance: CHOLECALCIFEROL
     Indication: BLOOD TEST ABNORMAL
  20. SINGULAIR [Concomitant]
     Active Substance: MONTELUKAST SODIUM
     Route: 048
  21. SYMBICORT [Suspect]
     Active Substance: BUDESONIDE\FORMOTEROL FUMARATE DIHYDRATE
     Indication: ASTHMA
     Dosage: ONE DOSE AT NIGHT
     Route: 055
  22. SYMBICORT [Suspect]
     Active Substance: BUDESONIDE\FORMOTEROL FUMARATE DIHYDRATE
     Indication: ASTHMA
     Dosage: 160/4.5 MCG, 2 PUFFS BID
     Route: 055
     Dates: start: 2012
  23. ASPIRIN. [Concomitant]
     Active Substance: ASPIRIN
  24. HYDRALAZINE [Concomitant]
     Active Substance: HYDRALAZINE HYDROCHLORIDE
     Route: 048
  25. CRESTOR [Suspect]
     Active Substance: ROSUVASTATIN CALCIUM
     Indication: BLOOD CHOLESTEROL ABNORMAL
     Route: 048
     Dates: start: 2008
  26. METOPROLOL SUCCINATE. [Suspect]
     Active Substance: METOPROLOL SUCCINATE
     Indication: BLOOD PRESSURE ABNORMAL
     Route: 048
     Dates: start: 20140906
  27. BLOOD PRESSURE PILLS [Concomitant]
     Active Substance: UNSPECIFIED INGREDIENT
     Indication: BLOOD PRESSURE ABNORMAL
  28. OTC [Concomitant]
     Active Substance: UNSPECIFIED INGREDIENT
     Indication: COLITIS ULCERATIVE
  29. COQ 10 [Concomitant]
     Active Substance: UBIDECARENONE
     Indication: CARDIOVASCULAR EVENT PROPHYLAXIS
     Dates: start: 2009
  30. FLAXSEED [Concomitant]
     Active Substance: FLAX SEED
     Indication: BLOOD CHOLESTEROL ABNORMAL
  31. MESALAMINE. [Concomitant]
     Active Substance: MESALAMINE
     Route: 048
  32. HYDRALAZINE [Concomitant]
     Active Substance: HYDRALAZINE HYDROCHLORIDE
     Dosage: APRESALINE 50 MG EVERY 6 HOURS
     Route: 048
  33. MUCINEX SR [Concomitant]
     Dosage: 600 MG EVERY 12 HR
     Route: 048
  34. PROBIOTIC [Concomitant]
     Active Substance: PROBIOTICS NOS
     Route: 048
  35. NEXIUM [Suspect]
     Active Substance: ESOMEPRAZOLE MAGNESIUM
     Indication: OESOPHAGEAL DISORDER
     Route: 048
     Dates: start: 2010
  36. VALSARTAN. [Concomitant]
     Active Substance: VALSARTAN
     Indication: BLOOD PRESSURE ABNORMAL
     Dosage: 160 MG, ONE IN MORNING,ONE AT NIGHT
     Route: 048
     Dates: start: 20140906
  37. NORCO [Concomitant]
     Active Substance: ACETAMINOPHEN\HYDROCODONE BITARTRATE
     Dosage: 325 MG AS NEEDED
     Route: 048
  38. DUONEB [Concomitant]
     Active Substance: ALBUTEROL SULFATE\IPRATROPIUM BROMIDE
     Route: 055

REACTIONS (28)
  - Dehydration [Unknown]
  - Clostridium difficile infection [Unknown]
  - Abdominal discomfort [Not Recovered/Not Resolved]
  - Nausea [Unknown]
  - Laryngitis [Unknown]
  - Blood triglycerides increased [Unknown]
  - Pain [Not Recovered/Not Resolved]
  - Chronic obstructive pulmonary disease [Unknown]
  - Fungal infection [Not Recovered/Not Resolved]
  - Respiratory failure [Unknown]
  - Dyslipidaemia [Unknown]
  - Vomiting [Unknown]
  - Dizziness [Unknown]
  - Urinary tract infection [Unknown]
  - Accelerated hypertension [Unknown]
  - Nocturia [Unknown]
  - Gastrooesophageal reflux disease [Unknown]
  - Intentional product misuse [Unknown]
  - Body height decreased [Unknown]
  - Malnutrition [Unknown]
  - Drug dose omission [Unknown]
  - Pneumonia [Recovered/Resolved]
  - Pseudomonas bronchitis [Unknown]
  - Off label use [Unknown]
  - Product use issue [Not Recovered/Not Resolved]
  - Neoplasm malignant [Unknown]
  - Pneumonia [Recovering/Resolving]
  - Dysphagia [Unknown]

NARRATIVE: CASE EVENT DATE: 20140310
